FAERS Safety Report 16016325 (Version 3)
Quarter: 2019Q1

REPORT INFORMATION
  Report Type: Spontaneous
  Country: AU (occurrence: AU)
  Receive Date: 20190228
  Receipt Date: 20190318
  Transmission Date: 20190418
  Serious: Yes (Other)
  Sender: FDA-Public Use
  Company Number: AU-SA-2019SA050878

PATIENT
  Sex: Female
  Weight: 60 kg

DRUGS (1)
  1. DUPILUMAB [Suspect]
     Active Substance: DUPILUMAB
     Dosage: UNK UNK, UNK
     Dates: end: 201902

REACTIONS (8)
  - Dry eye [Recovering/Resolving]
  - Eye pain [Not Recovered/Not Resolved]
  - Photosensitivity reaction [Recovering/Resolving]
  - Eye swelling [Not Recovered/Not Resolved]
  - Swelling of eyelid [Not Recovered/Not Resolved]
  - Cataract operation [Recovering/Resolving]
  - Arthralgia [Recovering/Resolving]
  - Conjunctivitis [Recovering/Resolving]
